FAERS Safety Report 5804009-2 (Version None)
Quarter: 2008Q3

REPORT INFORMATION
  Report Type: 
  Country: None (occurrence: None)
  Receive Date: 20080703
  Receipt Date: 20080623
  Transmission Date: 20090109
  Serious: Yes (Other)
  Sender: FDA-Public Use
  Company Number: 2008S1000074

PATIENT
  Age: 57 Year
  Sex: Female

DRUGS (4)
  1. INOMAX [Suspect]
     Indication: PULMONARY HYPERTENSION
     Dosage: 20 PPM; CONT; INH; 10 PPM; CONT; INH;  7 PPM; CONT; INH
     Route: 055
     Dates: start: 20080519, end: 20080523
  2. INOMAX [Suspect]
     Indication: PULMONARY HYPERTENSION
     Dosage: 20 PPM; CONT; INH; 10 PPM; CONT; INH;  7 PPM; CONT; INH
     Route: 055
     Dates: start: 20080523, end: 20080531
  3. INOMAX [Suspect]
     Indication: PULMONARY HYPERTENSION
     Dosage: 20 PPM; CONT; INH; 10 PPM; CONT; INH;  7 PPM; CONT; INH
     Route: 055
     Dates: start: 20080531, end: 20080531
  4. INOMAX [Suspect]

REACTIONS (4)
  - ATRIAL FIBRILLATION [None]
  - BLOOD PRESSURE DECREASED [None]
  - DEVICE FAILURE [None]
  - OXYGEN SATURATION DECREASED [None]
